FAERS Safety Report 23410544 (Version 1)
Quarter: 2024Q1

REPORT INFORMATION
  Report Type: Spontaneous
  Country: CA (occurrence: CA)
  Receive Date: 20240117
  Receipt Date: 20240117
  Transmission Date: 20240409
  Serious: Yes (Death, Other)
  Sender: FDA-Public Use
  Company Number: CA-MYLANLABS-2024M1004108

PATIENT
  Age: 103 Year
  Sex: Female

DRUGS (3)
  1. EFFEXOR XR [Suspect]
     Active Substance: VENLAFAXINE HYDROCHLORIDE
     Indication: Product used for unknown indication
     Dosage: UNK
     Route: 065
  2. TEGRETOL [Suspect]
     Active Substance: CARBAMAZEPINE
     Indication: Product used for unknown indication
     Dosage: UNK
     Route: 065
  3. TYLENOL [Concomitant]
     Active Substance: ACETAMINOPHEN
     Dosage: UNK
     Route: 065

REACTIONS (10)
  - Pneumonia aspiration [Fatal]
  - Altered state of consciousness [Fatal]
  - Aspiration [Fatal]
  - Dyspnoea [Fatal]
  - Ecchymosis [Fatal]
  - Fall [Fatal]
  - Petechiae [Fatal]
  - Purpura [Fatal]
  - Vomiting [Fatal]
  - Wrong patient received product [Fatal]
